APPROVED DRUG PRODUCT: LEVOTHYROXINE SODIUM
Active Ingredient: LEVOTHYROXINE SODIUM
Strength: 0.05MG
Dosage Form/Route: TABLET;ORAL
Application: A210831 | Product #002
Applicant: AMNEAL PHARMACEUTICALS LLC
Approved: Feb 19, 2019 | RLD: No | RS: No | Type: DISCN